FAERS Safety Report 10162370 (Version 1)
Quarter: 2014Q2

REPORT INFORMATION
  Report Type: Spontaneous
  Country: US (occurrence: US)
  Receive Date: 20140509
  Receipt Date: 20140509
  Transmission Date: 20141212
  Serious: Yes (Hospitalization)
  Sender: FDA-Public Use
  Company Number: US-BAYER-2014-067661

PATIENT
  Age: 36 Year
  Sex: Female
  Weight: 53 kg

DRUGS (8)
  1. YAZ [Suspect]
  2. OCELLA [Suspect]
  3. AMOXICILLIN TRIHYDRATE W/CLAVULANTE POTASSIUM [Concomitant]
     Dosage: 875 MG, UNK
     Dates: start: 20111205
  4. FLUTICASONE [Concomitant]
     Dosage: 50 MCG
     Dates: start: 20111205
  5. MOTRIN [Concomitant]
     Indication: ARTHRALGIA
     Dosage: 800 MG, BID
     Route: 048
     Dates: start: 20120302
  6. VICODIN [Concomitant]
     Indication: ARTHRALGIA
     Dosage: 5/500 MG, TWICE EVERY DAY PRN
     Route: 048
     Dates: start: 20120302
  7. ALBUTEROL [Concomitant]
     Indication: WHEEZING
     Dosage: UNK, AS NEEDED
     Route: 045
     Dates: start: 20120302
  8. ADVAIR [Concomitant]
     Dosage: UNK
     Dates: start: 20120302

REACTIONS (2)
  - Pulmonary embolism [None]
  - Deep vein thrombosis [None]
